FAERS Safety Report 15291494 (Version 14)
Quarter: 2018Q4

REPORT INFORMATION
  Report Type: Spontaneous
  Country: US (occurrence: US)
  Receive Date: 20180817
  Receipt Date: 20181221
  Transmission Date: 20190204
  Serious: Yes (Hospitalization)
  Sender: FDA-Public Use
  Company Number: US-PFIZER INC-2018331037

PATIENT
  Age: 76 Year
  Sex: Male
  Weight: 84 kg

DRUGS (7)
  1. SUTENT [Suspect]
     Active Substance: SUNITINIB MALATE
     Indication: RENAL CANCER
     Dosage: 50 MG, CYCLIC (ONCE A DAY, 28 DAYS ON, 14 DAYS OFF)
     Dates: start: 20180712
  2. METOPROLOL. [Concomitant]
     Active Substance: METOPROLOL
     Dosage: UNK
  3. METFORMIN [Concomitant]
     Active Substance: METFORMIN HYDROCHLORIDE
     Dosage: UNK
  4. GLIPIZIDE. [Concomitant]
     Active Substance: GLIPIZIDE
     Dosage: UNK
  5. AMLODIPINE [Concomitant]
     Active Substance: AMLODIPINE BESYLATE
     Dosage: UNK
  6. ATORVASTATIN [Concomitant]
     Active Substance: ATORVASTATIN
     Dosage: UNK
  7. LEVOTHYROXINE. [Concomitant]
     Active Substance: LEVOTHYROXINE
     Dosage: UNK

REACTIONS (29)
  - Dysgeusia [Not Recovered/Not Resolved]
  - Fungal infection [Unknown]
  - Dehydration [Unknown]
  - Abdominal pain upper [Unknown]
  - Pyrexia [Recovered/Resolved]
  - Glossodynia [Not Recovered/Not Resolved]
  - Ageusia [Not Recovered/Not Resolved]
  - Depressed mood [Unknown]
  - Malaise [Unknown]
  - Vomiting [Recovering/Resolving]
  - Eating disorder [Not Recovered/Not Resolved]
  - Tooth fracture [Unknown]
  - Oral pain [Not Recovered/Not Resolved]
  - Dizziness [Recovering/Resolving]
  - Peripheral swelling [Unknown]
  - Clostridium difficile infection [Not Recovered/Not Resolved]
  - Diarrhoea [Not Recovered/Not Resolved]
  - Renal failure [Unknown]
  - Nausea [Recovered/Resolved]
  - Feeling abnormal [Recovering/Resolving]
  - Muscle spasms [Not Recovered/Not Resolved]
  - Rash papular [Recovering/Resolving]
  - Blood glucose decreased [Unknown]
  - Weight decreased [Recovered/Resolved]
  - Sleep apnoea syndrome [Unknown]
  - Chills [Not Recovered/Not Resolved]
  - Decreased appetite [Not Recovered/Not Resolved]
  - Dry mouth [Unknown]
  - Rash [Recovered/Resolved]

NARRATIVE: CASE EVENT DATE: 2018
